FAERS Safety Report 10846940 (Version 1)
Quarter: 2015Q1

REPORT INFORMATION
  Report Type: Spontaneous
  Country: CH (occurrence: CH)
  Receive Date: 20150220
  Receipt Date: 20150220
  Transmission Date: 20150721
  Serious: Yes (Other)
  Sender: FDA-Public Use
  Company Number: CH-ASTRAZENECA-2015SE14934

PATIENT
  Sex: Male

DRUGS (7)
  1. SEROQUEL [Suspect]
     Active Substance: QUETIAPINE FUMARATE
     Indication: BIPOLAR I DISORDER
     Route: 048
  2. HALDOL [Suspect]
     Active Substance: HALOPERIDOL
     Route: 065
  3. BELOC ZOK [Suspect]
     Active Substance: METOPROLOL SUCCINATE
     Route: 048
  4. SEROQUEL [Suspect]
     Active Substance: QUETIAPINE FUMARATE
     Indication: BIPOLAR I DISORDER
     Dosage: TAKING 450 MG SEROQUEL IN THE MORNING AND 600 MG SEROQUEL IN THE EVENING.
     Route: 048
  5. LITHIUM CARBONATE ER [Suspect]
     Active Substance: LITHIUM CARBONATE
     Route: 065
  6. PIPERIDINE [Suspect]
     Active Substance: PIPERIDINE
     Route: 065
  7. ALDOLAT [Suspect]
     Active Substance: UNSPECIFIED INGREDIENT
     Route: 065

REACTIONS (2)
  - Pulmonary mass [Unknown]
  - Sarcoidosis [None]
